FAERS Safety Report 7270884-0 (Version None)
Quarter: 2011Q1

REPORT INFORMATION
  Report Type: 
  Country: None (occurrence: None)
  Receive Date: 20110202
  Receipt Date: 20110128
  Transmission Date: 20110831
  Serious: Yes (Hospitalization, Other)
  Sender: FDA-Public Use
  Company Number: US-ABBOTT-11P-163-0701399-00

PATIENT
  Sex: Female
  Weight: 63.56 kg

DRUGS (6)
  1. SYNTHROID [Suspect]
     Dates: start: 20030101, end: 20100101
  2. SYNTHROID [Suspect]
     Dates: end: 20110123
  3. SYNTHROID [Suspect]
     Indication: THYROID DISORDER
     Dates: start: 19950101, end: 20030101
  4. SYNTHROID [Suspect]
     Indication: THYROID DISORDER
     Dates: start: 20110125, end: 20110125
  5. SYNTHROID [Suspect]
     Indication: THYROID DISORDER
     Dates: start: 20030101, end: 20030101
  6. SYNTHROID [Suspect]
     Dosage: 50 MCG TWO DAYS AND 75 MCG FIVE DAYS

REACTIONS (10)
  - PRURITUS [None]
  - HYPOTENSION [None]
  - THYROID FUNCTION TEST ABNORMAL [None]
  - HYPERTENSION [None]
  - BLOOD PRESSURE INCREASED [None]
  - AUTOIMMUNE THYROIDITIS [None]
  - PALPITATIONS [None]
  - COUGH [None]
  - THROAT IRRITATION [None]
  - FEELING HOT [None]
